FAERS Safety Report 6083059-8 (Version None)
Quarter: 2009Q1

REPORT INFORMATION
  Report Type: 
  Country: None (occurrence: None)
  Receive Date: 20090218
  Receipt Date: 20090209
  Transmission Date: 20090719
  Serious: Yes (Other)
  Sender: FDA-Public Use
  Company Number: JP-MERCK-0901USA02893

PATIENT
  Age: 42 Year
  Sex: Male
  Weight: 84 kg

DRUGS (5)
  1. PROPECIA [Suspect]
     Indication: ANDROGENETIC ALOPECIA
     Route: 048
     Dates: start: 20070418, end: 20071114
  2. PROPECIA [Suspect]
     Route: 048
     Dates: start: 20080606, end: 20080925
  3. PROPECIA [Suspect]
     Route: 048
     Dates: start: 20080101
  4. PROPECIA [Suspect]
     Route: 048
     Dates: start: 20090107
  5. MINOXIDIL [Suspect]
     Indication: ANDROGENETIC ALOPECIA
     Route: 061

REACTIONS (1)
  - DIZZINESS [None]
